FAERS Safety Report 5160055-6 (Version None)
Quarter: 2006Q4

REPORT INFORMATION
  Report Type: 
  Country: None (occurrence: None)
  Receive Date: 20061129
  Receipt Date: 20060823
  Transmission Date: 20070319
  Serious: No
  Sender: FDA-Public Use
  Company Number: US-GLAXOSMITHKLINE-A0617829A

PATIENT
  Age: 80 Year
  Sex: Female

DRUGS (7)
  1. WELLBUTRIN SR [Suspect]
     Indication: DRUG USE FOR UNKNOWN INDICATION
     Dosage: 150MG TWICE PER DAY
     Route: 048
     Dates: start: 20051101
  2. BENICAR [Suspect]
     Dosage: 20MG PER DAY
     Route: 065
  3. DETROL LA [Suspect]
     Indication: BLADDER DISORDER
     Dosage: 4MG PER DAY
  4. PREVACID [Suspect]
     Dosage: 30MG PER DAY
     Route: 065
  5. FOLIC ACID [Concomitant]
  6. ONE A DAY VITAMIN [Concomitant]
  7. METHOTREXATE [Concomitant]

REACTIONS (3)
  - DRUG INTERACTION [None]
  - INCREASED APPETITE [None]
  - MEDICAL DIET [None]
